FAERS Safety Report 4597270-6 (Version None)
Quarter: 2005Q1

REPORT INFORMATION
  Report Type: 
  Country: None (occurrence: None)
  Receive Date: 20050301
  Receipt Date: 20050215
  Transmission Date: 20050727
  Serious: Yes (Other)
  Sender: FDA-Public Use
  Company Number: 200510109BVD

PATIENT
  Age: 58 Year
  Sex: Female
  Weight: 70 kg

DRUGS (2)
  1. AVELOX [Suspect]
     Indication: BRONCHITIS
     Dosage: 400 MG, TID, ORAL
     Route: 048
     Dates: start: 20050112
  2. KORODIN [Concomitant]

REACTIONS (8)
  - EXTRASYSTOLES [None]
  - HEART RATE DECREASED [None]
  - HYPERSENSITIVITY [None]
  - MONOPLEGIA [None]
  - NAUSEA [None]
  - RESPIRATORY RATE INCREASED [None]
  - TENDINOUS CONTRACTURE [None]
  - VERTIGO [None]
